FAERS Safety Report 13913329 (Version 1)
Quarter: 2017Q3

REPORT INFORMATION
  Report Type: Spontaneous
  Country: US (occurrence: US)
  Receive Date: 20170828
  Receipt Date: 20170828
  Transmission Date: 20171127
  Serious: No
  Sender: FDA-Public Use
  Company Number: US-ROCHE-1125542

PATIENT
  Sex: Male

DRUGS (3)
  1. NUTROPIN [Suspect]
     Active Substance: SOMATROPIN
     Route: 065
  2. NUTROPIN [Suspect]
     Active Substance: SOMATROPIN
     Dosage: WEEKLY
     Route: 065
  3. NUTROPIN [Suspect]
     Active Substance: SOMATROPIN
     Indication: GROWTH HORMONE DEFICIENCY
     Route: 065

REACTIONS (8)
  - Pain in extremity [Unknown]
  - Abdominal pain upper [Unknown]
  - Pollakiuria [Unknown]
  - Headache [Unknown]
  - Arthralgia [Unknown]
  - Upper respiratory tract congestion [Unknown]
  - Thirst [Unknown]
  - Drug dose omission [Unknown]
